FAERS Safety Report 17266397 (Version 1)
Quarter: 2020Q1

REPORT INFORMATION
  Report Type: Spontaneous
  Country: FR (occurrence: FR)
  Receive Date: 20200114
  Receipt Date: 20200114
  Transmission Date: 20200409
  Serious: Yes (Other)
  Sender: FDA-Public Use
  Company Number: NVSC2020FR006674

PATIENT
  Age: 71 Year
  Sex: Male

DRUGS (1)
  1. BISOPROLOL SANDOZ [Suspect]
     Active Substance: BISOPROLOL
     Indication: HYPERTENSION
     Dosage: 2.5 MG
     Route: 065
     Dates: start: 201801

REACTIONS (6)
  - Basal cell carcinoma [Unknown]
  - Hypertension [Recovering/Resolving]
  - Constipation [Unknown]
  - Tendonitis [Unknown]
  - Dizziness [Unknown]
  - Phlebitis [Unknown]

NARRATIVE: CASE EVENT DATE: 201901
